FAERS Safety Report 16121692 (Version 1)
Quarter: 2019Q1

REPORT INFORMATION
  Report Type: Spontaneous
  Country: PT (occurrence: PT)
  Receive Date: 20190327
  Receipt Date: 20190327
  Transmission Date: 20190418
  Serious: Yes (Other)
  Sender: FDA-Public Use
  Company Number: PT-ACCORD-115585

PATIENT
  Age: 64 Year
  Sex: Male

DRUGS (1)
  1. ITRACONAZOLE. [Suspect]
     Active Substance: ITRACONAZOLE
     Indication: BRONCHOPULMONARY ASPERGILLOSIS
     Dosage: 200MG 12/12H
     Route: 065
     Dates: start: 201702

REACTIONS (1)
  - Cardiotoxicity [Recovering/Resolving]
